FAERS Safety Report 5866687-1 (Version None)
Quarter: 2008Q3

REPORT INFORMATION
  Report Type: 
  Country: None (occurrence: None)
  Receive Date: 20080820
  Receipt Date: 20080815
  Transmission Date: 20090109
  Serious: Yes (Life-Threatening, Hospitalization)
  Sender: FDA-Public Use
  Company Number: 200813586

PATIENT
  Age: 25 Year
  Sex: Male
  Weight: 53 kg

DRUGS (7)
  1. ALBUMIN (HUMAN) [Suspect]
     Indication: HYPOTENSION
     Dosage: 500 ML DAILY IV
     Route: 042
     Dates: start: 20070521, end: 20070521
  2. DIPRIVAN [Concomitant]
  3. ULTIVA [Concomitant]
  4. FLUMARIN [Concomitant]
  5. BOSMIN [Concomitant]
  6. XYLOCAINE [Concomitant]
  7. MIDAZOLAM HCL [Concomitant]

REACTIONS (4)
  - ACIDOSIS [None]
  - ANAPHYLACTIC SHOCK [None]
  - INFECTION [None]
  - JUGULAR VEIN THROMBOSIS [None]
